FAERS Safety Report 9361880 (Version 5)
Quarter: 2014Q1

REPORT INFORMATION
  Report Type: Spontaneous
  Country: US (occurrence: US)
  Receive Date: 20130621
  Receipt Date: 20140113
  Transmission Date: 20141002
  Serious: Yes (Death, Hospitalization)
  Sender: FDA-Public Use
  Company Number: US-GLAXOSMITHKLINE-A1028017A

PATIENT
  Age: 62 Year
  Sex: Female
  Weight: 53.6 kg

DRUGS (1)
  1. FLOLAN [Suspect]
     Indication: COR PULMONALE CHRONIC
     Dosage: 35NGKM CONTINUOUS
     Route: 042
     Dates: start: 20110804

REACTIONS (6)
  - Lung disorder [Recovering/Resolving]
  - Fluid retention [Unknown]
  - Death [Fatal]
  - Therapeutic procedure [Unknown]
  - Central venous catheterisation [Unknown]
  - Infection [Unknown]
